FAERS Safety Report 10343872 (Version 1)
Quarter: 2014Q3

REPORT INFORMATION
  Report Type: Spontaneous
  Country: JP (occurrence: JP)
  Receive Date: 20140726
  Receipt Date: 20140726
  Transmission Date: 20150326
  Serious: No
  Sender: FDA-Public Use
  Company Number: PHHY2013JP158865

PATIENT
  Age: 74 Year
  Sex: Female

DRUGS (6)
  1. TASIGNA [Suspect]
     Active Substance: NILOTINIB
     Dosage: 800 MG, UNK
     Dates: start: 20130727
  2. SPRYCEL [Suspect]
     Active Substance: DASATINIB
  3. GLIVEC [Suspect]
     Active Substance: IMATINIB MESYLATE
  4. TASIGNA [Suspect]
     Active Substance: NILOTINIB
     Dosage: 800 MG, UNK
     Dates: start: 20130508
  5. CHEMOTHERAPEUTICS [Concomitant]
     Active Substance: UNSPECIFIED INGREDIENT
  6. TASIGNA [Suspect]
     Active Substance: NILOTINIB
     Indication: ACUTE LYMPHOCYTIC LEUKAEMIA
     Dosage: 800 MG, DAILY
     Dates: start: 201301

REACTIONS (1)
  - Gene mutation identification test positive [Unknown]
